FAERS Safety Report 18286899 (Version 1)
Quarter: 2020Q3

REPORT INFORMATION
  Report Type: Spontaneous
  Country: US (occurrence: US)
  Receive Date: 20200921
  Receipt Date: 20200921
  Transmission Date: 20201103
  Serious: Yes (Death, Other)
  Sender: FDA-Public Use
  Company Number: US-SUN PHARMACEUTICAL INDUSTRIES LTD-2020R1-261322

PATIENT
  Age: 81 Year
  Sex: Male

DRUGS (1)
  1. YONSA [Suspect]
     Active Substance: ABIRATERONE ACETATE
     Indication: PROSTATE CANCER
     Dosage: 500 MILLIGRAM, QD
     Route: 048
     Dates: start: 20200117, end: 20200521

REACTIONS (1)
  - Death [Fatal]

NARRATIVE: CASE EVENT DATE: 20200521
